FAERS Safety Report 11743499 (Version 2)
Quarter: 2015Q4

REPORT INFORMATION
  Report Type: Spontaneous
  Country: CO (occurrence: CO)
  Receive Date: 20151116
  Receipt Date: 20151207
  Transmission Date: 20160304
  Serious: Yes (Other)
  Sender: FDA-Public Use
  Company Number: CO-BAYER-2015-465509

PATIENT
  Age: 40 Year
  Sex: Female

DRUGS (2)
  1. YASMINIQ [Suspect]
     Active Substance: DROSPIRENONE\ETHINYL ESTRADIOL
     Indication: CONTRACEPTION
     Dosage: 1 DF, QD
     Route: 048
     Dates: start: 20151016
  2. VITAMIN E [Concomitant]
     Active Substance: .ALPHA.-TOCOPHEROL

REACTIONS (3)
  - Bronchitis [Recovering/Resolving]
  - Breast pain [Recovering/Resolving]
  - Breast enlargement [Recovering/Resolving]

NARRATIVE: CASE EVENT DATE: 20151016
